FAERS Safety Report 20779047 (Version 3)
Quarter: 2022Q3

REPORT INFORMATION
  Report Type: Spontaneous
  Country: US (occurrence: US)
  Receive Date: 20220503
  Receipt Date: 20220817
  Transmission Date: 20221026
  Serious: No
  Sender: FDA-Public Use
  Company Number: US-PFIZER INC-202101749834

PATIENT
  Age: 14 Year
  Sex: Female

DRUGS (6)
  1. EUCRISA [Suspect]
     Active Substance: CRISABOROLE
     Indication: Dermatitis atopic
     Dosage: APPLY TO AFFECTED AREAS (AAA) ON BODY AND FACE TWICE DAILY, AS NEEDED
     Route: 061
     Dates: start: 20190319
  2. EUCRISA [Suspect]
     Active Substance: CRISABOROLE
     Indication: Dermatitis allergic
  3. TRIAMCINOLONE [Concomitant]
     Active Substance: TRIAMCINOLONE
     Dosage: APPLY TO THE AFFECTED AREAS AS NEEDED
     Route: 061
  4. MONTELUKAST [Concomitant]
     Active Substance: MONTELUKAST SODIUM
     Indication: Asthma
     Dosage: UNK
  5. ALBUTEROL SULFATE [Concomitant]
     Active Substance: ALBUTEROL SULFATE
     Indication: Asthma
     Dosage: UNK
  6. PARAFFIN [Concomitant]
     Active Substance: PARAFFIN
     Dosage: EVERY EVENING

REACTIONS (1)
  - Dermatitis atopic [Unknown]
